FAERS Safety Report 20842616 (Version 1)
Quarter: 2022Q2

REPORT INFORMATION
  Report Type: Report from Study
  Country: US (occurrence: US)
  Receive Date: 20220518
  Receipt Date: 20220518
  Transmission Date: 20220721
  Serious: Yes (Hospitalization)
  Sender: FDA-Public Use
  Company Number: US-ABBVIE-22K-163-4396919-00

PATIENT
  Sex: Male

DRUGS (4)
  1. HUMIRA [Suspect]
     Active Substance: ADALIMUMAB
     Indication: Colitis ulcerative
     Route: 058
  2. COVID-19 VACCINE [Concomitant]
     Indication: COVID-19 immunisation
     Dosage: 1 DOSE
     Route: 030
  3. COVID-19 VACCINE [Concomitant]
     Dosage: 2 DOSE
     Route: 030
  4. COVID-19 VACCINE [Concomitant]
     Dosage: 3 DOSE
     Route: 030

REACTIONS (2)
  - Illness [Unknown]
  - Colitis ulcerative [Unknown]
